FAERS Safety Report 5957279-4 (Version None)
Quarter: 2008Q4

REPORT INFORMATION
  Report Type: 
  Country: None (occurrence: None)
  Receive Date: 20081118
  Receipt Date: 20081114
  Transmission Date: 20090506
  Serious: Yes (Death, Other)
  Sender: FDA-Public Use
  Company Number: US-BAYER-200814350BCC

PATIENT
  Age: 61 Year
  Sex: Male
  Weight: 98 kg

DRUGS (14)
  1. ASPIRIN [Suspect]
     Indication: DRUG USE FOR UNKNOWN INDICATION
     Dosage: TOTAL DAILY DOSE: 650 MG  UNIT DOSE: 325 MG
     Route: 048
  2. IMDUR [Suspect]
     Indication: DRUG USE FOR UNKNOWN INDICATION
     Dosage: TOTAL DAILY DOSE: 30 MG  UNIT DOSE: 30 MG
  3. ATENOLOL [Suspect]
     Indication: DRUG USE FOR UNKNOWN INDICATION
  4. ZESTORETIC [Suspect]
     Indication: DRUG USE FOR UNKNOWN INDICATION
  5. PEPCID [Suspect]
     Indication: DRUG USE FOR UNKNOWN INDICATION
  6. LIPITOR [Suspect]
     Indication: DRUG USE FOR UNKNOWN INDICATION
  7. PLAVIX [Suspect]
     Indication: DRUG USE FOR UNKNOWN INDICATION
     Route: 048
  8. VIOXX [Suspect]
     Indication: OSTEOARTHRITIS
     Dosage: TOTAL DAILY DOSE: 25 MG  UNIT DOSE: 25 MG
     Route: 048
     Dates: start: 20000901, end: 20040701
  9. ALLEGRA [Concomitant]
  10. FLOVENT [Concomitant]
  11. RHINOCORT [Concomitant]
  12. GLUCOSAMINE [Concomitant]
  13. VITAMINS [Concomitant]
  14. ASCORBIC ACID [Concomitant]

REACTIONS (26)
  - ABDOMINAL DISTENSION [None]
  - ABDOMINAL PAIN [None]
  - ANXIETY DISORDER [None]
  - ASPIRATION [None]
  - BRONCHOSPASM [None]
  - BUNDLE BRANCH BLOCK LEFT [None]
  - CARDIAC FAILURE CONGESTIVE [None]
  - CHEST PAIN [None]
  - CONSTIPATION [None]
  - DIVERTICULITIS [None]
  - DIVERTICULUM [None]
  - DYSPNOEA [None]
  - ERECTILE DYSFUNCTION [None]
  - FEELING COLD [None]
  - FLANK PAIN [None]
  - GASTROOESOPHAGEAL REFLUX DISEASE [None]
  - HAEMATOCHEZIA [None]
  - HYPERCHOLESTEROLAEMIA [None]
  - HYPERTENSION [None]
  - HYPOTENSION [None]
  - LIVER FUNCTION TEST ABNORMAL [None]
  - MIGRAINE [None]
  - MYOCARDIAL INFARCTION [None]
  - PSEUDOMEMBRANOUS COLITIS [None]
  - SEBORRHOEIC DERMATITIS [None]
  - VERY LOW DENSITY LIPOPROTEIN INCREASED [None]
